FAERS Safety Report 25753125 (Version 1)
Quarter: 2025Q3

REPORT INFORMATION
  Report Type: Report from Study
  Country: BR (occurrence: BR)
  Receive Date: 20250902
  Receipt Date: 20250902
  Transmission Date: 20251021
  Serious: Yes (Other)
  Sender: ABBVIE
  Company Number: BR-ABBVIE-6436210

PATIENT
  Age: 69 Year
  Sex: Female
  Weight: 58 kg

DRUGS (8)
  1. SKYRIZI [Suspect]
     Active Substance: RISANKIZUMAB-RZAA
     Indication: Psoriasis
     Route: 058
     Dates: start: 20210819
  2. Thrombophob [Concomitant]
     Indication: Oral surgery
     Dates: start: 20250725, end: 20250815
  3. Targifor c [Concomitant]
     Indication: Immune system disorder
     Dosage: TARGIFOR C+ 500MG
     Route: 048
     Dates: start: 20250702, end: 20250802
  4. ATORVASTATIN CALCIUM [Concomitant]
     Active Substance: ATORVASTATIN CALCIUM
     Indication: Blood cholesterol increased
     Route: 048
     Dates: start: 20240402
  5. METFORMIN HYDROCHLORIDE [Concomitant]
     Active Substance: METFORMIN HYDROCHLORIDE
     Indication: Cardiac disorder
     Dosage: GLIFAGE XR 500MG?AFTER LUNCH
     Route: 048
     Dates: start: 20240402
  6. ASPIRIN\DIHYDROXYALUMINUM AMINOACETATE ANHYDROUS\MAGNESIUM CARBONATE [Concomitant]
     Active Substance: ASPIRIN\DIHYDROXYALUMINUM AMINOACETATE ANHYDROUS\MAGNESIUM CARBONATE
     Indication: Cardiac disorder
     Route: 048
     Dates: start: 20240402
  7. CLOPIDOGREL [Concomitant]
     Active Substance: CLOPIDOGREL BISULFATE
     Indication: Anticoagulant therapy
     Route: 048
     Dates: start: 20240402
  8. HYDROCHLOROTHIAZIDE [Concomitant]
     Active Substance: HYDROCHLOROTHIAZIDE
     Indication: Hypertension
     Route: 048

REACTIONS (20)
  - Tooth extraction [Not Recovered/Not Resolved]
  - Glaucoma [Unknown]
  - Dry mouth [Not Recovered/Not Resolved]
  - Injury associated with device [Unknown]
  - Oral pain [Recovered/Resolved]
  - Memory impairment [Not Recovered/Not Resolved]
  - Medical device discomfort [Unknown]
  - Venous occlusion [Recovering/Resolving]
  - Cardiac disorder [Recovering/Resolving]
  - Weight decreased [Not Recovered/Not Resolved]
  - Dyspnoea [Recovered/Resolved]
  - Influenza [Recovered/Resolved]
  - Cough [Recovered/Resolved]
  - Decreased appetite [Unknown]
  - Confusional state [Unknown]
  - Wisdom teeth removal [Not Recovered/Not Resolved]
  - Mastication disorder [Unknown]
  - Appetite disorder [Unknown]
  - Dehydration [Unknown]
  - Stress [Unknown]

NARRATIVE: CASE EVENT DATE: 20240401
